FAERS Safety Report 16913861 (Version 3)
Quarter: 2019Q4

REPORT INFORMATION
  Report Type: Spontaneous
  Country: JP (occurrence: JP)
  Receive Date: 20191014
  Receipt Date: 20191121
  Transmission Date: 20200122
  Serious: Yes (Hospitalization)
  Sender: FDA-Public Use
  Company Number: JP-JNJFOC-20191011540

PATIENT
  Age: 80 Year
  Sex: Male

DRUGS (12)
  1. REMICADE [Suspect]
     Active Substance: INFLIXIMAB
     Indication: CROHN^S DISEASE
     Route: 042
     Dates: start: 20081205
  2. MAGMITT [Concomitant]
     Active Substance: MAGNESIUM OXIDE
     Indication: CONSTIPATION
     Route: 048
     Dates: start: 201503
  3. MIYA-BM [Concomitant]
     Active Substance: CLOSTRIDIUM BUTYRICUM SPORES STRAIN M-55
     Indication: CROHN^S DISEASE
     Route: 048
  4. EVAMYL [Concomitant]
     Active Substance: LORMETAZEPAM
     Indication: SLEEP DISORDER
     Route: 048
  5. PENTASA [Concomitant]
     Active Substance: MESALAMINE
     Indication: CROHN^S DISEASE
     Route: 048
  6. REMICADE [Suspect]
     Active Substance: INFLIXIMAB
     Route: 042
     Dates: start: 20120730
  7. DEPAS (ETIZOLAM) [Suspect]
     Active Substance: ETIZOLAM
     Indication: SLEEP DISORDER
     Route: 048
  8. AMLODIPINE [Concomitant]
     Active Substance: AMLODIPINE BESYLATE
     Indication: HYPERTENSION
     Route: 048
     Dates: start: 201712
  9. ROZEREM [Concomitant]
     Active Substance: RAMELTEON
     Indication: SLEEP DISORDER
     Route: 048
     Dates: start: 20180914
  10. REMICADE [Suspect]
     Active Substance: INFLIXIMAB
     Route: 042
     Dates: start: 20180827, end: 20180827
  11. FELTASE [Concomitant]
     Indication: CROHN^S DISEASE
     Route: 048
  12. TAKEPRON [Concomitant]
     Active Substance: LANSOPRAZOLE
     Indication: GASTROOESOPHAGEAL REFLUX DISEASE
     Route: 004

REACTIONS (1)
  - Lymphoma [Recovering/Resolving]

NARRATIVE: CASE EVENT DATE: 201810
